FAERS Safety Report 6891201-1 (Version None)
Quarter: 2010Q3

REPORT INFORMATION
  Report Type: 
  Country: None (occurrence: None)
  Receive Date: 20100731
  Receipt Date: 20090619
  Transmission Date: 20110219
  Serious: No
  Sender: FDA-Public Use
  Company Number: US-PFIZER INC-2009200545

PATIENT
  Sex: Male
  Weight: 90.703 kg

DRUGS (6)
  1. LIPITOR [Suspect]
     Indication: BLOOD CHOLESTEROL ABNORMAL
     Dosage: 20 MG, 1X/DAY
  2. TOPROL-XL [Concomitant]
     Indication: HYPERTENSION
     Dosage: UNK
  3. GABAPENTIN [Concomitant]
     Indication: MULTIPLE SCLEROSIS
     Dosage: UNK
  4. IMURAN [Concomitant]
  5. CELEXA [Concomitant]
     Dosage: UNK
  6. AMFETAMINE [Concomitant]
     Dosage: UNK

REACTIONS (1)
  - JOINT SWELLING [None]
